FAERS Safety Report 16760731 (Version 1)
Quarter: 2019Q3

REPORT INFORMATION
  Report Type: Report from Study
  Country: TR (occurrence: TR)
  Receive Date: 20190830
  Receipt Date: 20190830
  Transmission Date: 20191005
  Serious: Yes (Other)
  Sender: FDA-Public Use
  Company Number: TR-ROCHE-2391529

PATIENT

DRUGS (2)
  1. INTERFERON ALFA-2A [Suspect]
     Active Substance: INTERFERON ALFA-2A
     Indication: HEPATITIS C
     Dosage: 3 MIU/M2
     Route: 058
  2. RIBAVIRIN. [Suspect]
     Active Substance: RIBAVIRIN
     Indication: HEPATITIS C
     Route: 048

REACTIONS (7)
  - Pyrexia [Unknown]
  - Haemolysis [Unknown]
  - Alopecia [Unknown]
  - Haemolytic anaemia [Unknown]
  - Bone marrow failure [Unknown]
  - Influenza like illness [Unknown]
  - Decreased appetite [Unknown]
